FAERS Safety Report 7067209-2 (Version None)
Quarter: 2010Q4

REPORT INFORMATION
  Report Type: 
  Country: None (occurrence: None)
  Receive Date: 20101028
  Receipt Date: 20101018
  Transmission Date: 20110411
  Serious: No
  Sender: FDA-Public Use
  Company Number: 2009BI022751

PATIENT
  Sex: Female

DRUGS (1)
  1. TYSABRI [Suspect]
     Indication: MULTIPLE SCLEROSIS
     Route: 042
     Dates: start: 20090603, end: 20090702

REACTIONS (4)
  - ANAL FISSURE [None]
  - DYSPEPSIA [None]
  - HAEMORRHOIDS [None]
  - RECTAL FISSURE [None]
